FAERS Safety Report 17869093 (Version 2)
Quarter: 2022Q2

REPORT INFORMATION
  Report Type: Other
  Country: US (occurrence: None)
  Receive Date: 20200608
  Receipt Date: 20220525
  Transmission Date: 20220721
  Serious: Yes (Other)
  Sender: FDA-Public Use
  Company Number: US-ROCHE-2610522

PATIENT
  Age: 57 Year
  Sex: Male
  Weight: 88.984 kg

DRUGS (2)
  1. OCREVUS [Suspect]
     Active Substance: OCRELIZUMAB
     Indication: Progressive multiple sclerosis
     Dosage: INFUSION IS 5 HOURS LONG?;INFUSE 300MG DAY 1; 300MG DAY AND 600MG Q 6 MONTHS AFTER INITIAL DOSE
     Route: 065
     Dates: start: 201905
  2. PROVIGIL [Concomitant]
     Active Substance: MODAFINIL

REACTIONS (3)
  - Urinary tract infection [Recovered/Resolved]
  - Off label use [Unknown]
  - Exostosis [Not Recovered/Not Resolved]

NARRATIVE: CASE EVENT DATE: 20190501
